FAERS Safety Report 5085563-8 (Version None)
Quarter: 2006Q3

REPORT INFORMATION
  Report Type: 
  Country: None (occurrence: None)
  Receive Date: 20060822
  Receipt Date: 20050329
  Transmission Date: 20061208
  Serious: Yes (Hospitalization, Other)
  Sender: FDA-Public Use
  Company Number: US-GLAXOSMITHKLINE-A0555656A

PATIENT
  Age: 15 Year
  Sex: Female
  Weight: 60.2 kg

DRUGS (6)
  1. PAXIL CR [Suspect]
     Indication: DEPRESSION
     Dosage: 12.5MG IN THE MORNING
     Route: 048
     Dates: start: 20040918
  2. ADDERALL 10 [Concomitant]
  3. XANAX [Concomitant]
     Dosage: 1MG IN THE MORNING
  4. AMBIEN [Concomitant]
     Indication: INSOMNIA
     Dosage: 10MG AS REQUIRED
  5. ATIVAN [Concomitant]
     Dosage: 1MG AS REQUIRED
  6. KLONOPIN [Concomitant]

REACTIONS (31)
  - AGGRESSION [None]
  - AGITATION [None]
  - AMNESIA [None]
  - ANXIETY [None]
  - CRYING [None]
  - DEPRESSION [None]
  - DISSOCIATION [None]
  - DISTURBANCE IN ATTENTION [None]
  - DYSKINESIA [None]
  - HEAD BANGING [None]
  - HOSTILITY [None]
  - HYPERVENTILATION [None]
  - HYPOAESTHESIA [None]
  - HYPOAESTHESIA FACIAL [None]
  - IMPULSIVE BEHAVIOUR [None]
  - INSOMNIA [None]
  - INTENTIONAL SELF-INJURY [None]
  - IRRITABILITY [None]
  - LOGORRHOEA [None]
  - NIGHTMARE [None]
  - PANIC ATTACK [None]
  - PERSONALITY CHANGE [None]
  - PRURITUS [None]
  - PSYCHOMOTOR HYPERACTIVITY [None]
  - SELF MUTILATION [None]
  - SOCIAL AVOIDANT BEHAVIOUR [None]
  - SOMNOLENCE [None]
  - SUICIDAL IDEATION [None]
  - SUICIDE ATTEMPT [None]
  - TREMOR [None]
  - UNEVALUABLE EVENT [None]
